FAERS Safety Report 24329282 (Version 7)
Quarter: 2025Q1

REPORT INFORMATION
  Report Type: Report from Study
  Country: ES (occurrence: ES)
  Receive Date: 20240917
  Receipt Date: 20250310
  Transmission Date: 20250409
  Serious: Yes (Death, Hospitalization)
  Sender: ABBVIE
  Company Number: ES-ABBVIE-5921572

PATIENT
  Age: 79 Year
  Sex: Male

DRUGS (2)
  1. CARBIDOPA\LEVODOPA [Suspect]
     Active Substance: CARBIDOPA\LEVODOPA
     Indication: Parkinson^s disease
     Route: 050
     Dates: start: 20240529
  2. CARBIDOPA\LEVODOPA [Suspect]
     Active Substance: CARBIDOPA\LEVODOPA

REACTIONS (9)
  - Osteomyelitis [Fatal]
  - Device issue [Recovered/Resolved]
  - Subarachnoid haemorrhage [Recovering/Resolving]
  - Subdural hygroma [Recovering/Resolving]
  - Decubitus ulcer [Not Recovered/Not Resolved]
  - Mobility decreased [Not Recovered/Not Resolved]
  - Communication disorder [Unknown]
  - Pleural effusion [Fatal]
  - Bedridden [Unknown]

NARRATIVE: CASE EVENT DATE: 20240101
